FAERS Safety Report 19321304 (Version 1)
Quarter: 2021Q2

REPORT INFORMATION
  Report Type: Spontaneous
  Country: US (occurrence: US)
  Receive Date: 20210528
  Receipt Date: 20210528
  Transmission Date: 20210717
  Serious: Yes (Other)
  Sender: FDA-Public Use
  Company Number: None

PATIENT
  Age: 24 Year
  Sex: Female
  Weight: 102.06 kg

DRUGS (11)
  1. NEXPLANON [Suspect]
     Active Substance: ETONOGESTREL
  2. HYDROCODONE [Concomitant]
     Active Substance: HYDROCODONE
  3. MIDOL [Concomitant]
     Active Substance: IBUPROFEN
  4. VERAPAMIL [Concomitant]
     Active Substance: VERAPAMIL HYDROCHLORIDE
  5. EVENING PRIMROSE OIL [Concomitant]
     Active Substance: EVENING PRIMROSE OIL\HERBALS
  6. ADVIL [Concomitant]
     Active Substance: IBUPROFEN
  7. SINGULAIR [Concomitant]
     Active Substance: MONTELUKAST SODIUM
  8. WELLBUTRIN [Concomitant]
     Active Substance: BUPROPION HYDROCHLORIDE
  9. CYMBALTA [Concomitant]
     Active Substance: DULOXETINE HYDROCHLORIDE
  10. TYLENOL [Concomitant]
     Active Substance: ACETAMINOPHEN
  11. NATUREMADE PRENATAL [Concomitant]

REACTIONS (2)
  - Pregnancy with contraceptive device [None]
  - Vaginal haemorrhage [None]

NARRATIVE: CASE EVENT DATE: 20210525
